FAERS Safety Report 12961175 (Version 1)
Quarter: 2016Q4

REPORT INFORMATION
  Report Type: Spontaneous
  Country: US (occurrence: US)
  Receive Date: 20161121
  Receipt Date: 20161121
  Transmission Date: 20170207
  Serious: No
  Sender: FDA-Public Use
  Company Number: US-PFIZER INC-2016533803

PATIENT
  Age: 78 Year
  Sex: Male
  Weight: 93.88 kg

DRUGS (19)
  1. FUROSEMIDE. [Concomitant]
     Active Substance: FUROSEMIDE
     Dosage: 40 MG, UNK
     Route: 048
  2. HYDROCODONE/ACETAMINOPHEN [Concomitant]
     Active Substance: ACETAMINOPHEN\HYDROCODONE
     Dosage: UNK (HYDROCODONE-10MG, ACETAMINOPHEN-325MG)
     Route: 048
  3. OFLOXACIN. [Concomitant]
     Active Substance: OFLOXACIN
     Dosage: 0.3 %, UNK
     Route: 047
  4. LAC-HYDRIN [Concomitant]
     Active Substance: AMMONIUM LACTATE
     Dosage: 12 %, UNK
     Route: 061
  5. LISINOPRIL. [Concomitant]
     Active Substance: LISINOPRIL
     Dosage: 20 MG, UNK
     Route: 048
  6. VITAMIN D3 [Concomitant]
     Active Substance: CHOLECALCIFEROL
     Dosage: 5000 IU, UNK
     Route: 048
  7. TRAZODONE HYDROCHLORIDE. [Concomitant]
     Active Substance: TRAZODONE HYDROCHLORIDE
     Dosage: 50 MG, UNK
     Route: 048
  8. CYMBALTA [Concomitant]
     Active Substance: DULOXETINE HYDROCHLORIDE
     Dosage: 30 MG, UNK
     Route: 048
  9. GLIPIZIDE. [Concomitant]
     Active Substance: GLIPIZIDE
     Dosage: 5 MG, UNK
     Route: 048
  10. VESICARE [Concomitant]
     Active Substance: SOLIFENACIN SUCCINATE
     Dosage: 5 MG, UNK
     Route: 048
  11. TOVIAZ [Suspect]
     Active Substance: FESOTERODINE FUMARATE
     Indication: LOWER URINARY TRACT SYMPTOMS
     Dosage: 8 MG, 1X/DAY
     Route: 048
  12. CITALOPRAM HYDROBROMIDE. [Concomitant]
     Active Substance: CITALOPRAM HYDROBROMIDE
     Dosage: 20 MG, UNK
     Route: 048
  13. FLUTICASONE PROPIONATE. [Concomitant]
     Active Substance: FLUTICASONE PROPIONATE
     Dosage: 50 UG, UNK
  14. AMLODIPINE BESYLATE. [Concomitant]
     Active Substance: AMLODIPINE BESYLATE
     Dosage: 10 MG, UNK
     Route: 048
  15. HYDROCODONE/ACETAMINOPHEN [Concomitant]
     Active Substance: ACETAMINOPHEN\HYDROCODONE
     Dosage: UNK (HYDROCODONE-5MG, ACETAMINOPHEN-325MG)
  16. BACLOFEN. [Concomitant]
     Active Substance: BACLOFEN
     Dosage: 10 MG, UNK
     Route: 048
  17. TAMSULOSIN HCL [Concomitant]
     Active Substance: TAMSULOSIN
     Dosage: 0.4 MG, UNK
  18. ATORVASTATIN CALCIUM. [Concomitant]
     Active Substance: ATORVASTATIN CALCIUM
     Dosage: 40 MG, UNK
     Route: 048
  19. NOVOLIN N INNOLET [Concomitant]
     Dosage: UNK (100 UNIT/ML SUSP)

REACTIONS (3)
  - Drug ineffective [Unknown]
  - Penile size reduced [Unknown]
  - Depression [Unknown]
